FAERS Safety Report 7437830-8 (Version None)
Quarter: 2011Q2

REPORT INFORMATION
  Report Type: 
  Country: None (occurrence: None)
  Receive Date: 20110426
  Receipt Date: 20110420
  Transmission Date: 20111010
  Serious: Yes (Death, Hospitalization)
  Sender: FDA-Public Use
  Company Number: A0870878A

PATIENT
  Age: 45 Year
  Sex: Female
  Weight: 181.8 kg

DRUGS (6)
  1. METOPROLOL [Concomitant]
  2. ALBUTEROL [Concomitant]
  3. METOLAZONE [Concomitant]
  4. ZANTAC [Concomitant]
  5. AVANDIA [Suspect]
     Dosage: 8MG PER DAY
     Route: 048
  6. NORVASC [Concomitant]

REACTIONS (4)
  - CARDIO-RESPIRATORY ARREST [None]
  - CORONARY ARTERY DISEASE [None]
  - MYOCARDIAL INFARCTION [None]
  - CARDIAC FAILURE CONGESTIVE [None]
